FAERS Safety Report 8578462-8 (Version None)
Quarter: 2012Q3

REPORT INFORMATION
  Report Type: 
  Country: None (occurrence: None)
  Receive Date: 20120808
  Receipt Date: 20120725
  Transmission Date: 20120928
  Serious: Yes (Hospitalization, Other)
  Sender: FDA-Public Use
  Company Number: CA-JNJFOC-20120800752

PATIENT
  Sex: Female
  Weight: 70 kg

DRUGS (5)
  1. OMEPRAZOLE (PRISOLEC) [Concomitant]
     Route: 065
  2. TYLENOL W/ CODEINE NO. 4 [Concomitant]
     Indication: PAIN
     Route: 065
  3. DOMPERIDONE [Concomitant]
     Indication: DYSPEPSIA
     Route: 065
  4. TOPIRAMATE [Concomitant]
     Route: 065
  5. REMICADE [Suspect]
     Indication: CROHN'S DISEASE
     Dosage: 61 INFUSIONS
     Route: 042

REACTIONS (2)
  - BIOPSY BREAST [None]
  - MASTECTOMY [None]
